FAERS Safety Report 8942291 (Version 2)
Quarter: 2013Q1

REPORT INFORMATION
  Report Type: Spontaneous
  Country: US (occurrence: None)
  Receive Date: 20121123
  Receipt Date: 20121219
  Transmission Date: 20140127
  Serious: Yes (Life-Threatening, Other)
  Sender: FDA-Public Use
  Company Number: CRC-12-583

PATIENT
  Age: 46 Year
  Sex: Male
  Weight: 65.32 kg

DRUGS (3)
  1. OXALIPLATIN [Suspect]
     Indication: COLON CANCER
     Route: 042
     Dates: start: 20121112
  2. OXALIPLATIN [Suspect]
     Indication: COLON CANCER
     Route: 042
     Dates: start: 20121112
  3. AVASTIN [Concomitant]

REACTIONS (8)
  - Pruritus [None]
  - Nausea [None]
  - Blood pressure decreased [None]
  - Defaecation urgency [None]
  - Hyperhidrosis [None]
  - Oxygen saturation decreased [None]
  - Dyspnoea [None]
  - Infusion related reaction [None]
